FAERS Safety Report 8329955-X (Version None)
Quarter: 2012Q2

REPORT INFORMATION
  Report Type: 
  Country: None (occurrence: None)
  Receive Date: 20120502
  Receipt Date: 20091207
  Transmission Date: 20120825
  Serious: No
  Sender: FDA-Public Use
  Company Number: US-TEVA-2009029513

PATIENT
  Sex: Male
  Weight: 74.91 kg

DRUGS (4)
  1. VITAMIN TAB [Concomitant]
  2. ANDROGEL [Concomitant]
     Dates: start: 20090101
  3. NUVIGIL [Suspect]
     Indication: SOMNOLENCE
     Dosage: 150 MILLIGRAM;
     Route: 048
     Dates: start: 20090101
  4. SIMVASTATIN [Concomitant]

REACTIONS (4)
  - SURGERY [None]
  - DIZZINESS [None]
  - FEELING JITTERY [None]
  - ABNORMAL BEHAVIOUR [None]
